FAERS Safety Report 11995664 (Version 1)
Quarter: 2016Q1

REPORT INFORMATION
  Report Type: Spontaneous
  Country: US (occurrence: US)
  Receive Date: 20160203
  Receipt Date: 20160203
  Transmission Date: 20160526
  Serious: Yes (Other)
  Sender: FDA-Public Use
  Company Number: US-TEVA-630373USA

PATIENT
  Sex: Female

DRUGS (2)
  1. PROAIR HFA [Suspect]
     Active Substance: ALBUTEROL SULFATE
     Route: 055
  2. NEULASTA [Suspect]
     Active Substance: PEGFILGRASTIM
     Route: 065

REACTIONS (5)
  - Bone marrow disorder [Unknown]
  - Feeling cold [Unknown]
  - Splenic rupture [Unknown]
  - Peripheral vascular disorder [Unknown]
  - Wound [Unknown]

NARRATIVE: CASE EVENT DATE: 2013
